FAERS Safety Report 19236554 (Version 5)
Quarter: 2023Q2

REPORT INFORMATION
  Report Type: Other
  Country: US (occurrence: None)
  Receive Date: 20210510
  Receipt Date: 20230505
  Transmission Date: 20230722
  Serious: No
  Sender: FDA-Public Use
  Company Number: US-ROCHE-2370433

PATIENT
  Age: 37 Year
  Sex: Female
  Weight: 61.290 kg

DRUGS (15)
  1. OCREVUS [Suspect]
     Active Substance: OCRELIZUMAB
     Indication: Relapsing-remitting multiple sclerosis
     Dosage: EVERY 5 TO 6 MONTHS, ONGOING :YES; LAST DOSE: 03-NOV-2020
     Route: 042
     Dates: start: 20180507
  2. OCREVUS [Suspect]
     Active Substance: OCRELIZUMAB
     Route: 042
  3. OCREVUS [Suspect]
     Active Substance: OCRELIZUMAB
     Route: 042
     Dates: start: 2017
  4. XYZAL [Concomitant]
     Active Substance: LEVOCETIRIZINE DIHYDROCHLORIDE
     Indication: Seasonal allergy
     Route: 048
  5. LASIX [Concomitant]
     Active Substance: FUROSEMIDE
     Indication: Fluid retention
     Route: 048
  6. BUSPAR [Concomitant]
     Active Substance: BUSPIRONE HYDROCHLORIDE
  7. XANAX [Concomitant]
     Active Substance: ALPRAZOLAM
     Indication: Anxiety
  8. PROVIGIL [Concomitant]
     Active Substance: MODAFINIL
     Indication: Fatigue
  9. AJOVY [Concomitant]
     Active Substance: FREMANEZUMAB-VFRM
     Indication: Headache
  10. BOTOX [Concomitant]
     Active Substance: ONABOTULINUMTOXINA
  11. MOUNJARO [Concomitant]
     Active Substance: TIRZEPATIDE
  12. JUNEL [Concomitant]
     Active Substance: ETHINYL ESTRADIOL\NORETHINDRONE ACETATE
  13. PREDNISONE [Concomitant]
     Active Substance: PREDNISONE
  14. EPIPEN [Concomitant]
     Active Substance: EPINEPHRINE
  15. PFIZER-BIONTECH COVID-19 VACCINE [Concomitant]
     Active Substance: TOZINAMERAN

REACTIONS (6)
  - Weight fluctuation [Not Recovered/Not Resolved]
  - COVID-19 [Recovered/Resolved]
  - Asthma [Unknown]
  - Asthenia [Not Recovered/Not Resolved]
  - Rheumatoid arthritis [Not Recovered/Not Resolved]
  - Glucose tolerance impaired [Not Recovered/Not Resolved]

NARRATIVE: CASE EVENT DATE: 20210101
